FAERS Safety Report 15061099 (Version 1)
Quarter: 2018Q2

REPORT INFORMATION
  Report Type: Spontaneous
  Country: US (occurrence: US)
  Receive Date: 20180625
  Receipt Date: 20180625
  Transmission Date: 20180711
  Serious: No
  Sender: FDA-Public Use
  Company Number: US-ROCHE-2085796

PATIENT

DRUGS (8)
  1. ATEZOLIZUMAB. [Suspect]
     Active Substance: ATEZOLIZUMAB
     Dosage: CYCLE 2 DAY 1
     Route: 065
     Dates: start: 20171221
  2. BRIGATINIB [Concomitant]
     Active Substance: BRIGATINIB
     Indication: NON-SMALL CELL LUNG CANCER
     Route: 065
     Dates: start: 20170705
  3. CARBOPLATIN. [Concomitant]
     Active Substance: CARBOPLATIN
     Indication: NON-SMALL CELL LUNG CANCER
     Route: 065
     Dates: start: 201701
  4. ALECTINIB. [Suspect]
     Active Substance: ALECTINIB
     Indication: NON-SMALL CELL LUNG CANCER
     Dosage: THERAPY INTERRUPTED ON AN UNSPECIFIED DATE
     Route: 065
     Dates: start: 20170510
  5. VP-16 [Concomitant]
     Active Substance: ETOPOSIDE
     Indication: NON-SMALL CELL LUNG CANCER
     Route: 065
     Dates: start: 201701
  6. ATEZOLIZUMAB. [Suspect]
     Active Substance: ATEZOLIZUMAB
     Indication: NON-SMALL CELL LUNG CANCER
     Dosage: CYCLE 1 DAY 1
     Route: 065
     Dates: start: 20171130
  7. ALECTINIB. [Suspect]
     Active Substance: ALECTINIB
     Dosage: THERAPY RESTARTED
     Route: 065
  8. CRIZOTINIB [Suspect]
     Active Substance: CRIZOTINIB
     Indication: NON-SMALL CELL LUNG CANCER
     Route: 065
     Dates: start: 20160328, end: 20161019

REACTIONS (12)
  - Weight increased [Unknown]
  - Chest pain [Recovering/Resolving]
  - Pain in extremity [Recovering/Resolving]
  - Muscular weakness [Recovering/Resolving]
  - Decreased activity [Unknown]
  - Abdominal pain upper [Unknown]
  - Fatigue [Unknown]
  - Oedema peripheral [Recovering/Resolving]
  - Dyspnoea [Unknown]
  - Decreased appetite [Recovering/Resolving]
  - Vomiting [Unknown]
  - Back pain [Recovering/Resolving]

NARRATIVE: CASE EVENT DATE: 20170920
